FAERS Safety Report 8899387 (Version 1)
Quarter: 2012Q4

REPORT INFORMATION
  Report Type: Report from Study
  Country: CA (occurrence: CA)
  Receive Date: 20121109
  Receipt Date: 20121109
  Transmission Date: 20130627
  Serious: Yes (Life-Threatening, Hospitalization)
  Sender: FDA-Public Use
  Company Number: CA-PFIZER INC-2012277272

PATIENT
  Age: 74 Year
  Sex: Male

DRUGS (6)
  1. SUNITINIB MALATE [Suspect]
     Indication: MALIGNANT HEMANGIOPERICYTOMA
     Dosage: 50 mg, 6 week cycle
     Route: 048
     Dates: start: 20120905, end: 20120929
  2. TYLENOL EXTENDED RELIEF [Concomitant]
     Indication: PAIN NOS
     Dosage: UNK
     Dates: start: 2008
  3. IMODIUM [Concomitant]
     Indication: DIARRHEA
     Dosage: UNK
     Dates: start: 2009
  4. FLOMAX (TAMSULOSIN HYDROCHLORIDE) [Concomitant]
     Indication: BENIGN PROSTATIC HYPERPLASIA
     Dosage: UNK
     Dates: start: 201204
  5. NORVASC [Concomitant]
     Indication: HYPERTENSION
     Dosage: UNK
     Dates: start: 20120904
  6. TAZOCIN [Concomitant]
     Indication: INFECTION PROPHYLAXIS
     Dosage: UNK
     Dates: start: 20121010

REACTIONS (1)
  - Multi-organ failure [Not Recovered/Not Resolved]
